FAERS Safety Report 26013573 (Version 1)
Quarter: 2025Q4

REPORT INFORMATION
  Report Type: Spontaneous
  Country: US (occurrence: US)
  Receive Date: 20251107
  Receipt Date: 20251107
  Transmission Date: 20260118
  Serious: Yes (Hospitalization, Other)
  Sender: WALMART
  Company Number: US-Walmart-2188111

PATIENT
  Sex: Male

DRUGS (1)
  1. ISOPROPYL ALCOHOL [Suspect]
     Active Substance: ISOPROPYL ALCOHOL

REACTIONS (2)
  - Thermal burn [Unknown]
  - Injury [Unknown]
